FAERS Safety Report 13182481 (Version 1)
Quarter: 2017Q1

REPORT INFORMATION
  Report Type: Spontaneous
  Country: US (occurrence: US)
  Receive Date: 20170203
  Receipt Date: 20170203
  Transmission Date: 20170428
  Serious: No
  Sender: FDA-Public Use
  Company Number: US-PFIZER INC-2017045414

PATIENT

DRUGS (2)
  1. SUTENT [Suspect]
     Active Substance: SUNITINIB MALATE
     Dosage: 50 MG, CYCLIC (4/2) FOR 17 CYCLES (+/-)
     Dates: start: 200801, end: 201004
  2. SUTENT [Suspect]
     Active Substance: SUNITINIB MALATE
     Dosage: 37.5 MG, CYCLIC (4/2) FOR 3
     Dates: start: 200801, end: 201004

REACTIONS (9)
  - Fatigue [Unknown]
  - Nausea [Unknown]
  - Quality of life decreased [Unknown]
  - Dyspepsia [Unknown]
  - Left ventricular dysfunction [Recovered/Resolved]
  - Gastric disorder [Unknown]
  - Diarrhoea [Recovered/Resolved]
  - Pain of skin [Unknown]
  - Dysgeusia [Unknown]
